FAERS Safety Report 8087938-1 (Version None)
Quarter: 2012Q1

REPORT INFORMATION
  Report Type: 
  Country: None (occurrence: None)
  Receive Date: 20120130
  Receipt Date: 20120120
  Transmission Date: 20120608
  Serious: Yes (Other)
  Sender: FDA-Public Use
  Company Number: US-ASTRAZENECA-2012SE04677

PATIENT
  Age: 51 Year
  Sex: Male

DRUGS (14)
  1. LISINOPRIL [Suspect]
     Route: 048
  2. POTASSIUM CHLORIDE [Concomitant]
  3. DEPAKOTE [Concomitant]
  4. PRIMIDONE [Concomitant]
  5. SEROQUEL [Suspect]
     Route: 048
  6. VIMPAT [Concomitant]
  7. HYDROCODONE BITARTRATE [Concomitant]
     Dosage: 5-325 MG ONE TWICE DAILY
  8. PRILOSEC [Suspect]
     Route: 048
  9. BUMEX [Concomitant]
  10. TRAMADOL HCL [Concomitant]
  11. FLEXERIL [Concomitant]
  12. LASIX [Concomitant]
  13. SEROQUEL [Suspect]
     Route: 048
  14. CELEXA [Concomitant]

REACTIONS (7)
  - PRESSURE OF SPEECH [None]
  - AGITATION [None]
  - COGNITIVE DISORDER [None]
  - SUICIDAL IDEATION [None]
  - AGGRESSION [None]
  - JUDGEMENT IMPAIRED [None]
  - HOMICIDAL IDEATION [None]
